FAERS Safety Report 6438005-1 (Version None)
Quarter: 2009Q4

REPORT INFORMATION
  Report Type: 
  Country: None (occurrence: None)
  Receive Date: 20091112
  Receipt Date: 20091029
  Transmission Date: 20100525
  Serious: Yes (Other)
  Sender: FDA-Public Use
  Company Number: BE-PFIZER INC-2009292656

PATIENT
  Age: 55 Year
  Sex: Male

DRUGS (1)
  1. SULFASALAZINE [Suspect]
     Indication: GLIOBLASTOMA MULTIFORME
     Dosage: UNK

REACTIONS (1)
  - BRAIN OEDEMA [None]
